FAERS Safety Report 7867984-0 (Version None)
Quarter: 2011Q4

REPORT INFORMATION
  Report Type: 
  Country: None (occurrence: None)
  Receive Date: 20111028
  Receipt Date: 20111024
  Transmission Date: 20120403
  Serious: Yes (Other)
  Sender: FDA-Public Use
  Company Number: US-AMGEN-USASP2011054834

PATIENT
  Sex: Female

DRUGS (3)
  1. NEULASTA [Suspect]
     Indication: CHEMOTHERAPY
     Dates: end: 20110301
  2. TAXOL [Concomitant]
     Indication: MALIGNANT MELANOMA
     Dates: end: 20110228
  3. INTERFERON [Concomitant]
     Indication: MALIGNANT MELANOMA
     Dosage: 20 MILLION UNIT, UNK

REACTIONS (1)
  - NEUTROPENIA [None]
